FAERS Safety Report 9885617 (Version 1)
Quarter: 2014Q1

REPORT INFORMATION
  Report Type: Spontaneous
  Country: US (occurrence: US)
  Receive Date: 20140210
  Receipt Date: 20140210
  Transmission Date: 20141002
  Serious: Yes (Death)
  Sender: FDA-Public Use
  Company Number: US-BRACCO-010559

PATIENT
  Age: 50 Year
  Sex: Female
  Weight: 64 kg

DRUGS (12)
  1. KLONOPIN [Concomitant]
  2. PERCOCET [Concomitant]
  3. CYMBALTA [Concomitant]
  4. SYMBICORT [Concomitant]
  5. ALBUTEROL HFA [Concomitant]
     Indication: WHEEZING
  6. BUSPAR [Concomitant]
  7. NICODERM [Concomitant]
     Route: 061
     Dates: start: 20130815
  8. PLETAL [Concomitant]
     Dates: start: 20130801
  9. REMERON [Concomitant]
     Dates: start: 20130725
  10. LIPITOR [Concomitant]
     Route: 048
     Dates: start: 20130815
  11. PLAVIX [Concomitant]
     Dates: start: 20130725
  12. ISOVUE 370 [Suspect]
     Indication: ANGIOGRAM
     Dosage: LOT NUMBER AND EXPIRATION DATE NOT RECORDED BY FACILITY
     Route: 042
     Dates: start: 20131208, end: 20131208

REACTIONS (1)
  - Hypersensitivity [Fatal]
